FAERS Safety Report 5108251-8 (Version None)
Quarter: 2006Q3

REPORT INFORMATION
  Report Type: 
  Country: None (occurrence: None)
  Receive Date: 20060919
  Receipt Date: 20060908
  Transmission Date: 20061208
  Serious: Yes (Other)
  Sender: FDA-Public Use
  Company Number: US-JNJFOC-20060605221

PATIENT
  Sex: Female
  Weight: 103.87 kg

DRUGS (11)
  1. REMICADE [Suspect]
     Route: 042
     Dates: start: 20000101
  2. REMICADE [Suspect]
     Route: 042
     Dates: start: 20000101
  3. REMICADE [Suspect]
     Indication: CROHN'S DISEASE
     Dosage: 8 TO 9 VIALS, VARYING FREQUENCY
     Route: 042
     Dates: start: 20000101
  4. VITAMIN AND MINERAL PRENATAL SUPPLEMENT W/ FOLIC ACID CAP [Concomitant]
  5. VITAMIN AND MINERAL PRENATAL SUPPLEMENT W/ FOLIC ACID CAP [Concomitant]
     Indication: PREGNANCY
  6. PREDNISONE [Concomitant]
     Route: 048
  7. PREDNISONE [Concomitant]
     Route: 048
  8. PREDNISONE [Concomitant]
     Dosage: GIVEN TIMES 7 DAYS FOR CD FLARE
     Route: 048
  9. PREDNISONE [Concomitant]
     Dosage: VARYING DOSES
     Route: 048
  10. PREDNISONE [Concomitant]
     Dosage: VARYING DOSES
     Route: 048
  11. PREDNISONE [Concomitant]
     Indication: CROHN'S DISEASE
     Route: 048

REACTIONS (8)
  - CROHN'S DISEASE [None]
  - DRUG EXPOSURE DURING PREGNANCY [None]
  - GLUCOSE TOLERANCE TEST ABNORMAL [None]
  - HYPERTENSION [None]
  - METRORRHAGIA [None]
  - PLACENTA PRAEVIA [None]
  - PREGNANCY [None]
  - WHITE BLOOD CELL COUNT INCREASED [None]
